FAERS Safety Report 8774863 (Version 3)
Quarter: 2012Q4

REPORT INFORMATION
  Report Type: 
  Country: US (occurrence: US)
  Receive Date: 20120910
  Receipt Date: 20121113
  Transmission Date: 20130627
  Serious: Yes (Hospitalization)
  Sender: FDA-Public Use
  Company Number: US-BIOGENIDEC-2012BI034981

PATIENT
  Age: 39 Year
  Sex: Female

DRUGS (5)
  1. AVONEX [Suspect]
     Indication: MULTIPLE SCLEROSIS
     Route: 030
  2. AVONEX [Suspect]
     Indication: MULTIPLE SCLEROSIS
     Route: 030
     Dates: start: 20090817
  3. MEDICATION (NOS) [Concomitant]
     Indication: MULTIPLE SCLEROSIS RELAPSE
  4. STEROIDS (NOS) [Concomitant]
     Indication: MULTIPLE SCLEROSIS RELAPSE
  5. STEROIDS (NOS) [Concomitant]
     Indication: MULTIPLE SCLEROSIS

REACTIONS (2)
  - Multiple sclerosis relapse [Recovered/Resolved]
  - Multiple sclerosis [Recovered/Resolved]
